FAERS Safety Report 6907730-8 (Version None)
Quarter: 2010Q3

REPORT INFORMATION
  Report Type: 
  Country: None (occurrence: None)
  Receive Date: 20100716
  Receipt Date: 20100511
  Transmission Date: 20110219
  Serious: Yes (Other)
  Sender: FDA-Public Use
  Company Number: 2010059700

PATIENT
  Sex: Male

DRUGS (7)
  1. CELEBREX [Suspect]
  2. ASPIRIN [Concomitant]
  3. PREDNISONE [Concomitant]
  4. SIMVASTATIN [Concomitant]
  5. LISINOPRIL [Concomitant]
  6. PLAVIX [Concomitant]
  7. TOPROL-XL [Concomitant]

REACTIONS (1)
  - MYOCARDIAL INFARCTION [None]
